FAERS Safety Report 9570503 (Version 1)
Quarter: 2013Q3

REPORT INFORMATION
  Report Type: Spontaneous
  Country: US (occurrence: US)
  Receive Date: 20130930
  Receipt Date: 20130930
  Transmission Date: 20140515
  Serious: No
  Sender: FDA-Public Use
  Company Number: US-AMGEN-USASP2013063769

PATIENT
  Age: 42 Year
  Sex: Male
  Weight: 97.05 kg

DRUGS (5)
  1. ENBREL [Suspect]
     Indication: PRODUCT USED FOR UNKNOWN INDICATION
     Dosage: 50 MG, QWK
     Route: 058
  2. LOSARTAN POTASSIUM [Concomitant]
     Dosage: 25 MG, UNK
  3. MULTI [Concomitant]
     Dosage: UNK
  4. ASPIRIN [Concomitant]
     Dosage: 325 MG, UNK
  5. IBUPROFEN [Concomitant]
     Dosage: 200 MG, UNK

REACTIONS (2)
  - Rash pruritic [Unknown]
  - Pain in extremity [Unknown]
